FAERS Safety Report 4303378-2 (Version None)
Quarter: 2004Q1

REPORT INFORMATION
  Report Type: 
  Country: None (occurrence: None)
  Receive Date: 20040223
  Receipt Date: 20040217
  Transmission Date: 20041129
  Serious: Yes (Hospitalization)
  Sender: FDA-Public Use
  Company Number: 2004-02-0552

PATIENT
  Age: 51 Year
  Sex: Female
  Weight: 50 kg

DRUGS (8)
  1. REBETOL [Suspect]
     Indication: HEPATITIS C
     Dosage: 600 MG QD ORAL; 400 MG QD ORAL
     Route: 048
     Dates: start: 20030818, end: 20030907
  2. REBETOL [Suspect]
     Indication: HEPATITIS C
     Dosage: 600 MG QD ORAL; 400 MG QD ORAL
     Route: 048
     Dates: start: 20030908, end: 20040208
  3. INTRON A [Suspect]
     Indication: HEPATITIS C
     Dosage: 6 MU TIW INTRAMUSCULAR
     Route: 030
     Dates: start: 20030818
  4. INTRON A [Suspect]
     Indication: HEPATITIS C
     Dosage: 6 MU TIW INTRAMUSCULAR
     Route: 030
     Dates: start: 20040213
  5. DICLOFENAC SODIUM TABLETS [Suspect]
     Indication: HEADACHE
     Dosage: 3 QD ORAL
     Route: 048
     Dates: start: 20040130, end: 20040208
  6. DIHYDROERGOTAMINE MESILATE TABLETS [Suspect]
     Indication: HEADACHE
     Dosage: 3 QD ORAL
     Route: 048
     Dates: start: 20040130, end: 20040208
  7. OMEPRAZOLE [Concomitant]
  8. DOMEPERIDONE [Concomitant]

REACTIONS (3)
  - ABDOMINAL PAIN [None]
  - COLITIS ISCHAEMIC [None]
  - MELAENA [None]
